FAERS Safety Report 8143738-5 (Version None)
Quarter: 2012Q1

REPORT INFORMATION
  Report Type: 
  Country: None (occurrence: None)
  Receive Date: 20120217
  Receipt Date: 20120208
  Transmission Date: 20120608
  Serious: Yes (Life-Threatening)
  Sender: FDA-Public Use
  Company Number: US-SANOFI-AVENTIS-2012SA004972

PATIENT
  Age: 56 Year
  Sex: Male
  Weight: 111 kg

DRUGS (14)
  1. ELOXATIN [Suspect]
     Route: 041
     Dates: start: 20120112, end: 20120112
  2. XELODA [Suspect]
     Route: 048
     Dates: start: 20110908, end: 20120112
  3. COMPAZINE [Concomitant]
     Indication: NAUSEA
  4. ALOXI [Concomitant]
     Indication: PREMEDICATION
  5. ATIVAN [Concomitant]
     Indication: PREMEDICATION
  6. HYDROCHLOROTHIAZIDE [Concomitant]
     Indication: HYPERTENSION
     Route: 048
  7. DECADRON [Concomitant]
     Indication: PREMEDICATION
  8. ELOXATIN [Suspect]
     Route: 041
     Dates: start: 20110908, end: 20110908
  9. MIRALAX [Concomitant]
     Indication: CONSTIPATION
  10. EMEND [Concomitant]
     Indication: PREMEDICATION
  11. ELOXATIN [Suspect]
     Route: 041
     Dates: start: 20111222, end: 20111222
  12. METOPROLOL TARTRATE [Concomitant]
     Route: 048
  13. PROVENTIL [Concomitant]
  14. ANTIVERT [Concomitant]
     Indication: NAUSEA

REACTIONS (2)
  - CARDIO-RESPIRATORY ARREST [None]
  - ANAPHYLACTIC SHOCK [None]
